FAERS Safety Report 19029613 (Version 3)
Quarter: 2021Q1

REPORT INFORMATION
  Report Type: Spontaneous
  Country: US (occurrence: US)
  Receive Date: 20210318
  Receipt Date: 20210329
  Transmission Date: 20210420
  Serious: No
  Sender: FDA-Public Use
  Company Number: US-PFIZER INC-2021267423

PATIENT
  Age: 37 Year
  Sex: Male

DRUGS (2)
  1. XELJANZ XR [Suspect]
     Active Substance: TOFACITINIB CITRATE
     Indication: RHEUMATOID ARTHRITIS
     Dosage: 11 MG, 1X/DAY
     Route: 048
     Dates: start: 20210301
  2. PREDNISONE. [Concomitant]
     Active Substance: PREDNISONE
     Dosage: UNK (STARTED 3 YEARS AGO)
     Dates: start: 2018

REACTIONS (1)
  - Pain [Unknown]

NARRATIVE: CASE EVENT DATE: 202103
